FAERS Safety Report 14603513 (Version 1)
Quarter: 2018Q1

REPORT INFORMATION
  Report Type: Spontaneous
  Country: US (occurrence: US)
  Receive Date: 20180305
  Receipt Date: 20180305
  Transmission Date: 20180509
  Serious: No
  Sender: FDA-Public Use
  Company Number: None

PATIENT
  Age: 39 Year
  Sex: Female
  Weight: 107.1 kg

DRUGS (1)
  1. METFORMIN ER [Suspect]
     Active Substance: METFORMIN HYDROCHLORIDE
     Indication: POLYCYSTIC OVARIES

REACTIONS (2)
  - Abdominal pain [None]
  - Diarrhoea [None]

NARRATIVE: CASE EVENT DATE: 20160316
